FAERS Safety Report 25868142 (Version 1)
Quarter: 2025Q4

REPORT INFORMATION
  Report Type: Spontaneous
  Country: RU (occurrence: RU)
  Receive Date: 20251001
  Receipt Date: 20251001
  Transmission Date: 20260118
  Serious: Yes (Other)
  Sender: ABBVIE
  Company Number: RU-ABBVIE-6483750

PATIENT
  Age: 56 Year
  Sex: Female

DRUGS (2)
  1. OZURDEX [Suspect]
     Active Substance: DEXAMETHASONE
     Indication: Product used for unknown indication
     Dosage: TIME INTERVAL: AS NECESSARY
     Route: 050
  2. ASPIRIN [Concomitant]
     Active Substance: ASPIRIN
     Indication: Product used for unknown indication

REACTIONS (5)
  - Surgery [Unknown]
  - Vision blurred [Not Recovered/Not Resolved]
  - Eye haemorrhage [Unknown]
  - Vitreous floaters [Unknown]
  - Vitreous floaters [Recovered/Resolved]
